FAERS Safety Report 9465947 (Version 2)
Quarter: 2013Q3

REPORT INFORMATION
  Report Type: Spontaneous
  Country: US (occurrence: US)
  Receive Date: 20130820
  Receipt Date: 20130924
  Transmission Date: 20140515
  Serious: No
  Sender: FDA-Public Use
  Company Number: US-TEVA-427369USA

PATIENT
  Age: 47 Year
  Sex: Female
  Weight: 58.57 kg

DRUGS (3)
  1. PLAN B ONE-STEP [Suspect]
     Indication: POST COITAL CONTRACEPTION
     Dosage: 1.5 MILLIGRAM DAILY;
     Route: 050
     Dates: start: 20130807, end: 20130807
  2. T3 [Concomitant]
     Indication: HYPOTHYROIDISM
  3. T4 [Concomitant]
     Indication: HYPOTHYROIDISM

REACTIONS (5)
  - Vaginal discharge [Recovered/Resolved]
  - Nausea [Recovered/Resolved]
  - Fatigue [Recovered/Resolved]
  - Pelvic pain [Recovered/Resolved]
  - Menstruation irregular [Recovered/Resolved]
